FAERS Safety Report 9454747 (Version 1)
Quarter: 2013Q3

REPORT INFORMATION
  Report Type: Spontaneous
  Country: US (occurrence: US)
  Receive Date: 20130812
  Receipt Date: 20130812
  Transmission Date: 20140515
  Serious: No
  Sender: FDA-Public Use
  Company Number: US-009507513-1308USA004053

PATIENT
  Age: 58 Year
  Sex: Male

DRUGS (2)
  1. AZASITE [Suspect]
     Indication: EYE INFECTION
     Dosage: UNK
     Route: 047
     Dates: start: 20130807
  2. AMBIEN [Concomitant]

REACTIONS (1)
  - Eye burns [Not Recovered/Not Resolved]
